FAERS Safety Report 12890801 (Version 1)
Quarter: 2016Q4

REPORT INFORMATION
  Report Type: Spontaneous
  Country: US (occurrence: US)
  Receive Date: 20161027
  Receipt Date: 20161027
  Transmission Date: 20170207
  Serious: Yes (Death, Hospitalization, Other)
  Sender: FDA-Public Use
  Company Number: US-PFIZER INC-2016498222

PATIENT
  Age: 74 Year
  Sex: Male
  Weight: 122 kg

DRUGS (1)
  1. REVATIO [Suspect]
     Active Substance: SILDENAFIL CITRATE
     Indication: DYSPNOEA
     Dosage: 20 MG, UNK
     Dates: end: 201606

REACTIONS (3)
  - Kidney infection [Unknown]
  - Cardiac failure congestive [Fatal]
  - Infection [Unknown]

NARRATIVE: CASE EVENT DATE: 2016
